FAERS Safety Report 6602568-3 (Version None)
Quarter: 2010Q1

REPORT INFORMATION
  Report Type: 
  Country: None (occurrence: None)
  Receive Date: 20100217
  Receipt Date: 20100204
  Transmission Date: 20100710
  Serious: Yes (Hospitalization)
  Sender: FDA-Public Use
  Company Number: 231239J10USA

PATIENT
  Age: 36 Year
  Sex: Female
  Weight: 79 kg

DRUGS (3)
  1. REBIF [Suspect]
     Indication: MULTIPLE SCLEROSIS
     Dosage: 44 MCG, 3 IN 1 WEEKS, SUBCUTANEOUS
     Route: 058
     Dates: start: 20071210
  2. UNSPECIFIED ASTHMA MEDICATIONS (ANTI-ASTHMATICS) [Concomitant]
  3. UNSPECIFIED ALLERGY MEDICATIONS (ALLERGY MEDICATION) [Concomitant]

REACTIONS (2)
  - RECTOCELE [None]
  - UTERINE PROLAPSE [None]
